FAERS Safety Report 25477618 (Version 1)
Quarter: 2025Q2

REPORT INFORMATION
  Report Type: Spontaneous
  Country: DE (occurrence: DE)
  Receive Date: 20250625
  Receipt Date: 20250625
  Transmission Date: 20250717
  Serious: Yes (Hospitalization, Other)
  Sender: STRIDES
  Company Number: DE-STRIDES ARCOLAB LIMITED-2025SP007673

PATIENT
  Age: 2 Year
  Sex: Male

DRUGS (5)
  1. VERAPAMIL [Suspect]
     Active Substance: VERAPAMIL HYDROCHLORIDE
     Indication: Ventricular tachycardia
     Route: 065
  2. VERAPAMIL [Suspect]
     Active Substance: VERAPAMIL HYDROCHLORIDE
     Route: 065
  3. AMIODARONE [Suspect]
     Active Substance: AMIODARONE
     Indication: Ventricular tachycardia
     Route: 065
  4. MAGNESIUM [Suspect]
     Active Substance: MAGNESIUM
     Indication: Ventricular tachycardia
     Route: 065
  5. ADENOSINE [Concomitant]
     Active Substance: ADENOSINE
     Indication: Supraventricular tachycardia
     Route: 065

REACTIONS (2)
  - Torsade de pointes [Recovered/Resolved]
  - Drug ineffective for unapproved indication [Unknown]
